FAERS Safety Report 20550208 (Version 1)
Quarter: 2022Q1

REPORT INFORMATION
  Report Type: Spontaneous
  Country: US (occurrence: US)
  Receive Date: 20220304
  Receipt Date: 20220304
  Transmission Date: 20220424
  Serious: No
  Sender: FDA-Public Use
  Company Number: US-PURDUE-USA-2022-0290984

PATIENT
  Age: 77 Year
  Sex: Female

DRUGS (22)
  1. BUPRENORPHINE [Suspect]
     Active Substance: BUPRENORPHINE
     Indication: Myalgia
     Dosage: 5 MCG/HR, WEEKLY, APPLY 1 PATCH
     Route: 062
     Dates: start: 20211224
  2. REMICADE [Concomitant]
     Active Substance: INFLIXIMAB
     Indication: Pain
     Dosage: UNK,  EVERY 8 WEEKS, 1 INFUSION
     Route: 042
     Dates: start: 2019
  3. REMICADE [Concomitant]
     Active Substance: INFLIXIMAB
     Indication: Arthritis
  4. LIDOCAINE [Concomitant]
     Active Substance: LIDOCAINE
     Indication: Pain
     Dosage: 5 %, DAILY
     Route: 062
  5. APRISO [Concomitant]
     Active Substance: MESALAMINE
     Indication: Crohn^s disease
     Dosage: 375 MG, DAILY, YEARS AGO, ONCE DAILY IN AM
     Route: 048
  6. NEXIUM                             /01479302/ [Concomitant]
     Indication: Gastrooesophageal reflux disease
     Dosage: 40 MG, BID
     Route: 048
  7. ATORVASTATIN CALCIUM [Concomitant]
     Active Substance: ATORVASTATIN CALCIUM
     Indication: Blood cholesterol increased
     Dosage: 20 MG, DAILY, HALF TABLET, SEVERAL YEARS AGO
     Route: 048
  8. HYDROCODONE BITARTRATE AND ACETAMINOPHEN [Concomitant]
     Active Substance: ACETAMINOPHEN\HYDROCODONE BITARTRATE
     Indication: Pain
     Dosage: 5-325 MG, DAILY, HALF TO 1 TAB, NO MORE THAN 4 TABLETS, PRN DOSING
     Route: 048
  9. ESZOPICLONE [Concomitant]
     Active Substance: ESZOPICLONE
     Indication: Sleep disorder
     Dosage: UNKNOWN, AT HS
     Route: 048
  10. FEMRING [Concomitant]
     Active Substance: ESTRADIOL ACETATE
     Indication: Blood oestrogen
     Dosage: 0.05 MG, DAILY, 1 RING, PER 24 HOURS (EVERY 90 DAYS)
     Route: 067
  11. ACYCLOVIR                          /00587301/ [Concomitant]
     Indication: Oral herpes
     Dosage: 400 MG, DAILY, 10D PRN
     Route: 048
  12. ZYRTEC [Concomitant]
     Active Substance: CETIRIZINE HYDROCHLORIDE
     Indication: Hypersensitivity
     Dosage: 10 MG, UNKNOWN
     Route: 065
  13. ZYRTEC [Concomitant]
     Active Substance: CETIRIZINE HYDROCHLORIDE
     Indication: Sinus pain
  14. CITRACAL                           /00751520/ [Concomitant]
     Indication: Calcium deficiency
     Dosage: 630MG W/500MG D3, DAILY
     Route: 048
  15. CENTRUM SILVER                     /01292501/ [Concomitant]
     Indication: Hypovitaminosis
     Dosage: UNK, DAILY
     Route: 048
  16. VITAMIN D                          /00107901/ [Concomitant]
     Indication: Vitamin D deficiency
     Dosage: 2000 IU, DAILY
     Route: 048
  17. VITAMIN B12                        /00056201/ [Concomitant]
     Indication: Energy increased
     Dosage: 1000 MCG, DAILY (APPROX 6 MONTHS AGO)
     Route: 048
  18. IMODIUM [Concomitant]
     Active Substance: LOPERAMIDE HYDROCHLORIDE
     Indication: Diarrhoea
     Dosage: UNK
     Route: 065
  19. ATROPINE\DIPHENOXYLATE HYDROCHLORIDE [Concomitant]
     Active Substance: ATROPINE\DIPHENOXYLATE HYDROCHLORIDE
     Indication: Diarrhoea
     Dosage: 2.5MG/0.025MG (1-3 TABS DAILY PRN)
     Route: 048
  20. CHOLESTYRAMINE [Concomitant]
     Active Substance: CHOLESTYRAMINE
     Indication: Diarrhoea
     Dosage: 4 GRAM, DAILY (MIXES WITH WATER)
     Route: 065
  21. CLOBETASOL [Concomitant]
     Active Substance: CLOBETASOL
     Indication: Skin irritation
     Dosage: 0.5 %, PRN (1 TIME DAILY TO AFFECTED AREA)
     Route: 061
  22. TRIAMCINOLONE [Concomitant]
     Active Substance: TRIAMCINOLONE
     Indication: Pruritus
     Dosage: 0.1 %, DAILY (APPLY TO AFFECTED AREA)
     Route: 061

REACTIONS (2)
  - Accident [Recovered/Resolved]
  - Micturition urgency [Recovered/Resolved]
